FAERS Safety Report 13877555 (Version 1)
Quarter: 2017Q3

REPORT INFORMATION
  Report Type: Spontaneous
  Country: US (occurrence: US)
  Receive Date: 20170817
  Receipt Date: 20170817
  Transmission Date: 20171127
  Serious: No
  Sender: FDA-Public Use
  Company Number: US-BEH-2017082932

PATIENT
  Sex: Female
  Weight: 87.75 kg

DRUGS (46)
  1. DESONIDE. [Concomitant]
     Active Substance: DESONIDE
     Route: 065
  2. LIDOCAINE. [Concomitant]
     Active Substance: LIDOCAINE
     Route: 065
  3. CYCLOBENZAPRINE. [Concomitant]
     Active Substance: CYCLOBENZAPRINE
     Route: 065
  4. MAGNESIUM [Concomitant]
     Active Substance: MAGNESIUM
     Route: 065
  5. GABAPENTIN. [Concomitant]
     Active Substance: GABAPENTIN
     Route: 065
  6. CARAFATE [Concomitant]
     Active Substance: SUCRALFATE
     Route: 065
  7. KLOR-CON [Concomitant]
     Active Substance: POTASSIUM CHLORIDE
     Route: 065
  8. MEDROL [Concomitant]
     Active Substance: METHYLPREDNISOLONE
     Route: 065
  9. DIAZEPAM. [Concomitant]
     Active Substance: DIAZEPAM
     Route: 065
  10. DEXAMETH [Concomitant]
     Active Substance: DEXAMETHASONE
     Route: 065
  11. LACTIC ACID. [Concomitant]
     Active Substance: LACTIC ACID
     Route: 065
  12. MUCINEX [Concomitant]
     Active Substance: GUAIFENESIN
     Route: 065
  13. EPIPEN [Concomitant]
     Active Substance: EPINEPHRINE
     Route: 065
  14. PULMICORT TURBUHALER [Concomitant]
     Active Substance: BUDESONIDE
     Route: 065
  15. METOPROLOL. [Concomitant]
     Active Substance: METOPROLOL
     Route: 065
  16. ALBUTEROL                          /00139501/ [Concomitant]
     Active Substance: ALBUTEROL
     Route: 065
  17. CALCIUM CARBONATE. [Concomitant]
     Active Substance: CALCIUM CARBONATE
     Route: 065
  18. VITAMIN D2 [Concomitant]
     Active Substance: ERGOCALCIFEROL
     Route: 065
  19. MEROPENEM. [Concomitant]
     Active Substance: MEROPENEM
     Route: 065
  20. NOVOLIN N [Concomitant]
     Active Substance: INSULIN HUMAN
     Route: 065
  21. AYR                                /00083601/ [Concomitant]
     Route: 065
  22. ZYRTEC [Concomitant]
     Active Substance: CETIRIZINE HYDROCHLORIDE
     Route: 065
  23. BIOTIN [Concomitant]
     Active Substance: BIOTIN
     Route: 065
  24. TERCONAZOLE. [Concomitant]
     Active Substance: TERCONAZOLE
     Route: 065
  25. UREA. [Concomitant]
     Active Substance: UREA
     Route: 065
  26. HUMULIN N [Concomitant]
     Active Substance: INSULIN HUMAN
     Route: 065
  27. ELIQUIS [Concomitant]
     Active Substance: APIXABAN
     Route: 065
  28. PREMARIN [Concomitant]
     Active Substance: ESTROGENS, CONJUGATED
     Route: 065
  29. PROVENTIL [Concomitant]
     Active Substance: ALBUTEROL
     Route: 065
  30. NYSTATIN. [Concomitant]
     Active Substance: NYSTATIN
     Route: 065
  31. NEOMYCIN-POLYMYXIN [Concomitant]
     Route: 065
  32. HYDROCORTISONE. [Concomitant]
     Active Substance: HYDROCORTISONE
     Route: 065
  33. ALPHA LIPOIC ACID [Concomitant]
     Active Substance: .ALPHA.-LIPOIC ACID
     Route: 065
  34. HIZENTRA [Suspect]
     Active Substance: HUMAN IMMUNOGLOBULIN G
     Indication: IMMUNODEFICIENCY COMMON VARIABLE
     Dosage: 10 G, QW
     Route: 058
     Dates: start: 20170626
  35. ACETAMINOPHEN. [Concomitant]
     Active Substance: ACETAMINOPHEN
     Route: 065
  36. ALPRAZOLAM. [Concomitant]
     Active Substance: ALPRAZOLAM
     Route: 065
  37. BUTALBITAL [Concomitant]
     Active Substance: BUTALBITAL
     Route: 065
  38. CRANBERRY                          /01512301/ [Concomitant]
     Active Substance: CRANBERRY
     Route: 065
  39. FINACEA [Concomitant]
     Active Substance: AZELAIC ACID
     Route: 065
  40. MEDROL [Concomitant]
     Active Substance: METHYLPREDNISOLONE
     Route: 065
  41. NASONEX [Concomitant]
     Active Substance: MOMETASONE FUROATE
     Route: 065
  42. HYDRALAZINE [Concomitant]
     Active Substance: HYDRALAZINE HYDROCHLORIDE
     Route: 065
  43. MIRALAX [Concomitant]
     Active Substance: POLYETHYLENE GLYCOL 3350
     Route: 065
  44. XOPENEX [Concomitant]
     Active Substance: LEVALBUTEROL HYDROCHLORIDE
     Route: 065
  45. BENZOCAINE. [Concomitant]
     Active Substance: BENZOCAINE
     Route: 065
  46. ANTACID                            /07357001/ [Concomitant]
     Route: 065

REACTIONS (2)
  - Blood pressure increased [Unknown]
  - Chest discomfort [Unknown]
